FAERS Safety Report 4514865-6 (Version None)
Quarter: 2004Q4

REPORT INFORMATION
  Report Type: 
  Country: None (occurrence: None)
  Receive Date: 20041201
  Receipt Date: 20030729
  Transmission Date: 20050328
  Serious: Yes (Death)
  Sender: FDA-Public Use
  Company Number: NSADSS2001002455

PATIENT
  Sex: Female

DRUGS (1)
  1. PROPULSID [Suspect]
     Route: 065

REACTIONS (4)
  - CARDIAC DEATH [None]
  - CARDIAC DISORDER [None]
  - NAUSEA [None]
  - VOMITING [None]
